FAERS Safety Report 15641007 (Version 1)
Quarter: 2018Q4

REPORT INFORMATION
  Report Type: Spontaneous
  Country: CA (occurrence: CA)
  Receive Date: 20181120
  Receipt Date: 20181120
  Transmission Date: 20190205
  Serious: Yes (Death)
  Sender: FDA-Public Use
  Company Number: CA-CASPER PHARMA LLC-2018CAS000326

PATIENT
  Age: 70 Year
  Sex: Male
  Weight: 68 kg

DRUGS (2)
  1. FENOFIBRATE. [Suspect]
     Active Substance: FENOFIBRATE
     Indication: DYSLIPIDAEMIA
     Dosage: 200 MILLIGRAM, QD
     Route: 048
  2. SIMVASTATIN. [Suspect]
     Active Substance: SIMVASTATIN
     Indication: DYSLIPIDAEMIA
     Dosage: 20 MILLIGRAM, QD
     Route: 065

REACTIONS (2)
  - Intestinal perforation [Fatal]
  - Pancreatitis necrotising [Fatal]
